FAERS Safety Report 5964108-1 (Version None)
Quarter: 2008Q4

REPORT INFORMATION
  Report Type: 
  Country: None (occurrence: None)
  Receive Date: 20081124
  Receipt Date: 20081118
  Transmission Date: 20090506
  Serious: Yes (Other)
  Sender: FDA-Public Use
  Company Number: IT-ROXANE LABORATORIES, INC.-2008-RO-00238RO

PATIENT
  Age: 73 Year
  Sex: Female

DRUGS (5)
  1. AZATHIOPRINE [Suspect]
     Indication: AUTOIMMUNE HEPATITIS
     Dosage: 100MG
  2. AZATHIOPRINE [Suspect]
     Dosage: 50MG
  3. PREDNISONE TAB [Suspect]
     Indication: AUTOIMMUNE HEPATITIS
     Dosage: 50MG
  4. REHYDRATION [Concomitant]
     Indication: DIARRHOEA
     Route: 048
  5. REHYDRATION [Concomitant]
     Indication: HYPOTENSION

REACTIONS (3)
  - DIARRHOEA [None]
  - HYPOTENSION [None]
  - TREATMENT NONCOMPLIANCE [None]
